FAERS Safety Report 4279262-X (Version None)
Quarter: 2004Q1

REPORT INFORMATION
  Report Type: 
  Country: None (occurrence: None)
  Receive Date: 20040122
  Receipt Date: 20040109
  Transmission Date: 20041129
  Serious: Yes (Other)
  Sender: FDA-Public Use
  Company Number: 2004002747

PATIENT
  Age: 24 Year
  Sex: Female
  Weight: 75 kg

DRUGS (4)
  1. ATARAX [Suspect]
     Indication: ILL-DEFINED DISORDER
     Dosage: 1 ML INTRAVENOUS
     Route: 042
     Dates: start: 20000125
  2. METAMIZOLE SODIUM (METAMIZOLE SODIUM) [Suspect]
     Indication: ILL-DEFINED DISORDER
  3. CEFAZOLIN SODIUM [Suspect]
     Indication: ILL-DEFINED DISORDER
     Dosage: INTRAVENOUS
     Route: 042
  4. MINOCYCLINE HYDROCHLORIDE [Suspect]
     Indication: ILL-DEFINED DISORDER

REACTIONS (1)
  - SYNCOPE [None]
